FAERS Safety Report 17819937 (Version 1)
Quarter: 2020Q2

REPORT INFORMATION
  Report Type: Report from Study
  Country: GB (occurrence: GB)
  Receive Date: 20200525
  Receipt Date: 20200525
  Transmission Date: 20200714
  Serious: No
  Sender: FDA-Public Use
  Company Number: GB-AMGEN-GBRSL2020080212

PATIENT
  Age: 63 Year
  Sex: Female

DRUGS (2)
  1. AMGEVITA [Suspect]
     Active Substance: ADALIMUMAB
     Dosage: 40 MILLIGRAM, Q2WK
     Route: 065
  2. AMGEVITA [Suspect]
     Active Substance: ADALIMUMAB
     Indication: PROSTATIC SPECIFIC ANTIGEN
     Dosage: 40 MILLIGRAM, Q2WK
     Route: 065

REACTIONS (4)
  - Device issue [Unknown]
  - Drug dose omission by device [Unknown]
  - Wrong technique in product usage process [Unknown]
  - Injection site pain [Unknown]

NARRATIVE: CASE EVENT DATE: 20200515
